FAERS Safety Report 19879830 (Version 1)
Quarter: 2021Q3

REPORT INFORMATION
  Report Type: Spontaneous
  Country: GB (occurrence: GB)
  Receive Date: 20210924
  Receipt Date: 20210924
  Transmission Date: 20211014
  Serious: Yes (Other)
  Sender: FDA-Public Use
  Company Number: GB-ASTRAZENECA-2021A729728

PATIENT
  Age: 78 Year
  Sex: Female

DRUGS (2)
  1. VENTOLIN [Concomitant]
     Active Substance: ALBUTEROL SULFATE
  2. PULMICORT TURBUHALER [Suspect]
     Active Substance: BUDESONIDE
     Indication: ASTHMA
     Dosage: 100 MICROGRAMS TWICE A DAY
     Route: 055
     Dates: start: 20210909, end: 20210912

REACTIONS (11)
  - Headache [Recovered/Resolved]
  - Agitation [Recovered/Resolved]
  - Tension [Recovered/Resolved]
  - Decreased appetite [Unknown]
  - Disturbance in attention [Recovered/Resolved]
  - Asthenia [Recovered/Resolved]
  - Vision blurred [Recovered/Resolved]
  - Thirst [Recovered/Resolved]
  - Feeling abnormal [Unknown]
  - Eye pain [Recovered/Resolved]
  - Restlessness [Recovered/Resolved]

NARRATIVE: CASE EVENT DATE: 20210910
